FAERS Safety Report 19905651 (Version 1)
Quarter: 2021Q4

REPORT INFORMATION
  Report Type: Spontaneous
  Country: CN (occurrence: CN)
  Receive Date: 20211001
  Receipt Date: 20211001
  Transmission Date: 20220303
  Serious: Yes (Hospitalization)
  Sender: FDA-Public Use
  Company Number: 2021A752358

PATIENT
  Age: 75 Year
  Sex: Female
  Weight: 62 kg

DRUGS (5)
  1. DAPAGLIFLOZIN [Suspect]
     Active Substance: DAPAGLIFLOZIN
     Indication: Diabetic nephropathy
     Route: 048
     Dates: start: 20210906, end: 20210913
  2. DAPAGLIFLOZIN [Suspect]
     Active Substance: DAPAGLIFLOZIN
     Indication: Chronic kidney disease
     Route: 048
     Dates: start: 20210906, end: 20210913
  3. GUANXINNING [Concomitant]
     Indication: Hypertension
     Route: 041
     Dates: start: 20210824, end: 20210913
  4. GUANXINNING [Concomitant]
     Indication: Chronic kidney disease
     Route: 041
     Dates: start: 20210824, end: 20210913
  5. ASTRAGALUS [Concomitant]
     Indication: Diabetic nephropathy
     Route: 041
     Dates: start: 20210824, end: 20210913

REACTIONS (1)
  - Renal impairment [Recovering/Resolving]

NARRATIVE: CASE EVENT DATE: 20210913
